FAERS Safety Report 16598142 (Version 1)
Quarter: 2019Q3

REPORT INFORMATION
  Report Type: Spontaneous
  Country: US (occurrence: US)
  Receive Date: 20190719
  Receipt Date: 20190719
  Transmission Date: 20191004
  Serious: Yes (Hospitalization)
  Sender: FDA-Public Use
  Company Number: US-ASTRAZENECA-2019SF03758

PATIENT
  Age: 79 Year
  Sex: Female
  Weight: 77.1 kg

DRUGS (1)
  1. NEXIUM 24HR [Suspect]
     Active Substance: ESOMEPRAZOLE MAGNESIUM
     Route: 048

REACTIONS (2)
  - Cerebrovascular accident [Unknown]
  - Product use complaint [Unknown]

NARRATIVE: CASE EVENT DATE: 20190614
